FAERS Safety Report 13957655 (Version 2)
Quarter: 2024Q1

REPORT INFORMATION
  Report Type: Other
  Country: DE (occurrence: DE)
  Receive Date: 20170912
  Receipt Date: 20240109
  Transmission Date: 20240409
  Serious: Yes (Hospitalization, Disabling, Other)
  Sender: FDA-Public Use
  Company Number: DE-MACLEODS PHARMACEUTICALS US LTD-MAC2017005820

PATIENT

DRUGS (9)
  1. LEVOFLOXACIN [Suspect]
     Active Substance: LEVOFLOXACIN
     Indication: Prostatitis
     Dosage: 500 MILLIGRAM, BID (100 BZW 500 MG, 1000 MG DAILY)
     Route: 048
     Dates: start: 20160517, end: 20160521
  2. OFLOXACIN [Suspect]
     Active Substance: OFLOXACIN
     Indication: Urinary tract infection
     Dosage: 100 MG, UNK (100 OR 500 MG)
     Route: 048
     Dates: start: 20160428, end: 20160505
  3. CORTISONE ACETATE [Concomitant]
     Active Substance: CORTISONE ACETATE
     Indication: Antiinflammatory therapy
     Dosage: 100 OR 500 MG, INTRAVENOUS DRIP, SPORTS INJURY IN THE GROIN, ADMINISTERED 3X AS
     Route: 042
  4. CORTISONE ACETATE [Concomitant]
     Active Substance: CORTISONE ACETATE
     Indication: Analgesic therapy
  5. CORTISONE ACETATE [Concomitant]
     Active Substance: CORTISONE ACETATE
     Indication: Sports injury
  6. IBUPROFEN [Concomitant]
     Active Substance: IBUPROFEN
     Indication: Antiinflammatory therapy
     Dosage: 400 MILLIGRAM
     Route: 048
  7. IBUPROFEN [Concomitant]
     Active Substance: IBUPROFEN
     Indication: Analgesic therapy
  8. IBUPROFEN [Concomitant]
     Active Substance: IBUPROFEN
     Indication: Pain
  9. AMOXICILLIN [Concomitant]
     Active Substance: AMOXICILLIN
     Indication: Prostatitis
     Dosage: 125 MILLIGRAM
     Route: 048

REACTIONS (21)
  - Food intolerance [Not Recovered/Not Resolved]
  - Dysphagia [Not Recovered/Not Resolved]
  - Apathy [Not Recovered/Not Resolved]
  - Fatigue [Not Recovered/Not Resolved]
  - Myalgia [Recovered/Resolved]
  - Tinnitus [Not Recovered/Not Resolved]
  - Tendon pain [Not Recovered/Not Resolved]
  - Paraesthesia [Not Recovered/Not Resolved]
  - Arthralgia [Not Recovered/Not Resolved]
  - Polyneuropathy [Recovered/Resolved]
  - Neuralgia [Recovered/Resolved]
  - Headache [Recovered/Resolved]
  - Muscle tightness [Recovered/Resolved]
  - Arthralgia [Unknown]
  - Back pain [Unknown]
  - Fear of death [Unknown]
  - Burning sensation [Recovered/Resolved]
  - Testicular pain [Unknown]
  - Eating disorder [Recovered/Resolved]
  - Tendon pain [Unknown]
  - Musculoskeletal discomfort [Unknown]

NARRATIVE: CASE EVENT DATE: 20160428
